FAERS Safety Report 8436974-1 (Version None)
Quarter: 2012Q2

REPORT INFORMATION
  Report Type: 
  Country: None (occurrence: None)
  Receive Date: 20120614
  Receipt Date: 20120203
  Transmission Date: 20120825
  Serious: No
  Sender: FDA-Public Use
  Company Number: US-AMGEN-USASP2012007639

PATIENT
  Sex: Female

DRUGS (1)
  1. ARANESP [Suspect]
     Indication: ANAEMIA
     Dosage: UNK UNK, Q2WK

REACTIONS (1)
  - RED BLOOD CELL COUNT DECREASED [None]
